FAERS Safety Report 13273207 (Version 2)
Quarter: 2017Q1

REPORT INFORMATION
  Report Type: Spontaneous
  Country: IT (occurrence: IT)
  Receive Date: 20170227
  Receipt Date: 20170302
  Transmission Date: 20170428
  Serious: Yes (Hospitalization)
  Sender: FDA-Public Use
  Company Number: IT-PFIZER INC-2017084219

PATIENT
  Age: 72 Year
  Sex: Female

DRUGS (3)
  1. XANAX [Suspect]
     Active Substance: ALPRAZOLAM
     Dosage: 5 MG, (0.25 MG X 20 TABLETS)
     Route: 048
     Dates: start: 20170220, end: 20170220
  2. DEPALGOS [Suspect]
     Active Substance: ACETAMINOPHEN\OXYCODONE HYDROCHLORIDE
     Dosage: 330 MG (28 TABLETS)
     Route: 048
     Dates: start: 20170220, end: 20170220
  3. COUMADIN [Suspect]
     Active Substance: WARFARIN SODIUM
     Dosage: 150 MG, SINGLE
     Route: 048
     Dates: start: 20170220, end: 20170220

REACTIONS (4)
  - Drug abuse [Unknown]
  - Suicide attempt [Unknown]
  - Slow speech [Unknown]
  - Erythema [Unknown]

NARRATIVE: CASE EVENT DATE: 20170220
